FAERS Safety Report 8482535-8 (Version None)
Quarter: 2012Q3

REPORT INFORMATION
  Report Type: 
  Country: None (occurrence: None)
  Receive Date: 20120702
  Receipt Date: 20120620
  Transmission Date: 20120928
  Serious: Yes (Other)
  Sender: FDA-Public Use
  Company Number: JP-JNJFOC-20120611963

PATIENT
  Age: 6 Decade
  Sex: Female

DRUGS (2)
  1. IFOSFAMIDE [Suspect]
     Indication: PHYLLODES TUMOUR
     Dosage: DAY 1 TO 5, TOTAL 10 CYCLES
     Route: 042
  2. DOXIL [Suspect]
     Indication: PHYLLODES TUMOUR
     Dosage: DOXORUBICIN HYDROCHLORIDE WAS INCLUDED AFTER CYCLE 2 UNTIL CYCLE 5
     Route: 042

REACTIONS (3)
  - BONE MARROW FAILURE [None]
  - NAUSEA [None]
  - CYSTITIS HAEMORRHAGIC [None]
